FAERS Safety Report 8969564 (Version 1)
Quarter: 2012Q4

REPORT INFORMATION
  Report Type: 
  Country: US (occurrence: US)
  Receive Date: 20121218
  Receipt Date: 20121218
  Transmission Date: 20130627
  Serious: Yes (Hospitalization)
  Sender: FDA-Public Use
  Company Number: US-SANOFI-AVENTIS-2012SA090351

PATIENT
  Age: 54 Year
  Sex: Male
  Weight: 93.9 kg

DRUGS (18)
  1. AMBIEN CR [Suspect]
     Indication: DRUG USE FOR UNKNOWN INDICATION
     Route: 065
     Dates: start: 2008
  2. PERCOCET [Suspect]
     Indication: DRUG USE FOR UNKNOWN INDICATION
     Route: 065
     Dates: start: 20081027
  3. ALPRAZOLAM [Suspect]
     Indication: DRUG USE FOR UNKNOWN INDICATION
     Route: 065
     Dates: start: 20030214
  4. TYLENOL WITH CODEINE [Suspect]
     Indication: DRUG USE FOR UNKNOWN INDICATION
     Route: 065
     Dates: start: 1986
  5. AMLODIPINE [Concomitant]
     Dates: start: 20080820
  6. CARVEDILOL [Concomitant]
     Dates: start: 20081218
  7. LISINOPRIL [Concomitant]
     Dates: start: 20100109
  8. PANTOPRAZOLE [Concomitant]
     Dates: start: 20080720
  9. POTASSIUM CHLORIDE [Concomitant]
     Dates: start: 20090902
  10. SIMVASTATIN [Concomitant]
     Dates: start: 20081027
  11. ASPIRIN [Concomitant]
     Dates: start: 20080828
  12. FUROSEMIDE [Concomitant]
     Dates: start: 20090112, end: 20110227
  13. FUROSEMIDE [Concomitant]
     Dates: start: 20110228
  14. OMEPRAZOLE [Concomitant]
     Dates: start: 20090105, end: 20110227
  15. OMEPRAZOLE [Concomitant]
     Dates: start: 20110303
  16. PRASUGREL [Concomitant]
     Dates: start: 20100519
  17. SILDENAFIL [Concomitant]
     Dates: start: 20090619
  18. AUGMENTIN [Concomitant]
     Dates: start: 20110223, end: 20110303

REACTIONS (2)
  - Hyponatraemia [Recovered/Resolved]
  - Delirium [Recovered/Resolved]
